FAERS Safety Report 6401695-3 (Version None)
Quarter: 2009Q4

REPORT INFORMATION
  Report Type: 
  Country: None (occurrence: None)
  Receive Date: 20091015
  Receipt Date: 20091005
  Transmission Date: 20100525
  Serious: Yes (Hospitalization)
  Sender: FDA-Public Use
  Company Number: FI-JNJFOC-20091001609

PATIENT

DRUGS (10)
  1. REMICADE [Suspect]
     Indication: RHEUMATOID ARTHRITIS
     Route: 042
     Dates: start: 20020101, end: 20030101
  2. HUMIRA [Suspect]
     Indication: RHEUMATOID ARTHRITIS
  3. ENBREL [Suspect]
     Indication: RHEUMATOID ARTHRITIS
  4. METHOTREXATE [Suspect]
     Indication: RHEUMATOID ARTHRITIS
     Dosage: INITIATED IN THE END OF THE 1980'S
  5. FOLIC ACID [Concomitant]
  6. PREDNISONE [Concomitant]
  7. AMITRID [Concomitant]
  8. FOSAMAX [Concomitant]
  9. KALCIPOS-D [Concomitant]
  10. PARA-TABS [Concomitant]

REACTIONS (2)
  - BREAST CANCER [None]
  - DRUG INEFFECTIVE [None]
